FAERS Safety Report 7808273-X (Version None)
Quarter: 2011Q4

REPORT INFORMATION
  Report Type: 
  Country: None (occurrence: None)
  Receive Date: 20111012
  Receipt Date: 20111004
  Transmission Date: 20120403
  Serious: Yes (Hospitalization)
  Sender: FDA-Public Use
  Company Number: US-BIOGENIDEC-2011BI027228

PATIENT
  Age: 62 Year
  Sex: Female

DRUGS (6)
  1. CARDIZEM [Concomitant]
     Indication: HYPERTENSION
  2. AVONEX [Suspect]
     Indication: MULTIPLE SCLEROSIS
     Route: 030
     Dates: start: 20051005
  3. MOBIC [Concomitant]
     Indication: PAIN IN EXTREMITY
  4. METFORMIN HYDROCHLORIDE [Concomitant]
     Indication: TYPE 2 DIABETES MELLITUS
     Dates: start: 20100101
  5. TYLENOL-500 [Concomitant]
     Indication: PREMEDICATION
  6. DIOVAN HCT [Concomitant]
     Indication: HYPERTENSION

REACTIONS (6)
  - LOSS OF CONSCIOUSNESS [None]
  - RETINITIS PIGMENTOSA [None]
  - MULTIPLE SCLEROSIS RELAPSE [None]
  - ROAD TRAFFIC ACCIDENT [None]
  - PARAESTHESIA [None]
  - PAIN IN EXTREMITY [None]
